FAERS Safety Report 18053861 (Version 3)
Quarter: 2021Q3

REPORT INFORMATION
  Report Type: Spontaneous
  Country: US (occurrence: US)
  Receive Date: 20200722
  Receipt Date: 20210729
  Transmission Date: 20211014
  Serious: Yes (Death)
  Sender: FDA-Public Use
  Company Number: US-TEVA-2020-US-1804289

PATIENT
  Age: 88 Year
  Sex: Female
  Weight: 99.79 kg

DRUGS (23)
  1. VALSARTAN TEVA [Suspect]
     Active Substance: VALSARTAN
     Route: 048
     Dates: start: 201510, end: 201511
  2. VALSARTAN?HCTZ ALEMBIC [Suspect]
     Active Substance: HYDROCHLOROTHIAZIDE\VALSARTAN
     Indication: HYPERTENSION
     Dosage: 320/25 MG
     Route: 048
     Dates: start: 2017
  3. IRON [Concomitant]
     Active Substance: IRON
     Indication: ANAEMIA
     Dosage: 320/65MG
     Route: 065
     Dates: start: 201712, end: 201912
  4. VALSARTAN TEVA [Suspect]
     Active Substance: VALSARTAN
     Indication: HYPERTENSION
     Route: 048
     Dates: start: 20150223, end: 201509
  5. MAGNESIUM [Concomitant]
     Active Substance: MAGNESIUM
     Route: 065
     Dates: start: 201501, end: 201912
  6. TYLENOL [Concomitant]
     Active Substance: ACETAMINOPHEN
     Indication: PAIN
     Route: 065
     Dates: start: 200906, end: 202001
  7. IPRATROPIUM?ALBUTEROL [Concomitant]
     Active Substance: ALBUTEROL\IPRATROPIUM
     Dosage: 3MF/0.5MG (2.5MG BASE/3ML NEBULIZATION SOLUTION): INHALE 3ML 4 TIMES A DAY BY NEBULIZATION
     Route: 048
     Dates: start: 201911
  8. NAMENDA [Concomitant]
     Active Substance: MEMANTINE HYDROCHLORIDE
     Route: 048
     Dates: start: 201908
  9. VALSARTAN?HCTZ ACTAVIS [Suspect]
     Active Substance: HYDROCHLOROTHIAZIDE\VALSARTAN
     Indication: HYPERTENSION
     Dosage: 320/25MG
     Route: 048
     Dates: start: 20160229, end: 20160330
  10. VALSARTAN QUALITEST [Suspect]
     Active Substance: VALSARTAN
     Indication: HYPERTENSION
     Route: 048
     Dates: start: 201509, end: 201510
  11. VITAMIN D2 [Concomitant]
     Active Substance: ERGOCALCIFEROL
     Indication: VITAMIN D DECREASED
     Route: 048
     Dates: start: 201506, end: 201912
  12. FENOFIBRATE. [Concomitant]
     Active Substance: FENOFIBRATE
     Route: 048
     Dates: start: 20190927
  13. VALSARTAN?HCTZ TEVA [Suspect]
     Active Substance: HYDROCHLOROTHIAZIDE\VALSARTAN
     Dosage: 320/25MG
     Route: 048
     Dates: start: 201707, end: 201710
  14. FELODIPINE. [Concomitant]
     Active Substance: FELODIPINE
     Indication: HYPERTENSION
     Route: 048
     Dates: start: 201706, end: 201912
  15. VALSARTAN?HCTZ ACTAVIS [Suspect]
     Active Substance: HYDROCHLOROTHIAZIDE\VALSARTAN
     Dosage: 320/25MG
     Route: 048
     Dates: start: 201510
  16. VALSARTAN SANDOZ [Suspect]
     Active Substance: VALSARTAN
     Indication: HYPERTENSION
     Route: 048
     Dates: start: 20150126, end: 20150225
  17. GERITOL [Concomitant]
     Active Substance: MINERALS\VITAMINS
     Route: 065
     Dates: start: 201801, end: 201912
  18. AMLODIPINE?VALSARTAN PAR PHARMA [Suspect]
     Active Substance: AMLODIPINE\VALSARTAN
     Indication: HYPERTENSION
     Dosage: 5MG/320MG
     Route: 048
     Dates: start: 20141020, end: 20141119
  19. VALSARTAN?HCTZ TEVA [Suspect]
     Active Substance: HYDROCHLOROTHIAZIDE\VALSARTAN
     Indication: HYPERTENSION
     Dosage: 320/25MG
     Route: 048
     Dates: start: 201604, end: 20170629
  20. SIMVASTATIN. [Concomitant]
     Active Substance: SIMVASTATIN
     Indication: BLOOD CHOLESTEROL INCREASED
     Route: 048
     Dates: start: 201501, end: 202001
  21. VALSARTAN?HCTZ LUPIN [Suspect]
     Active Substance: HYDROCHLOROTHIAZIDE\VALSARTAN
     Indication: HYPERTENSION
     Route: 048
     Dates: start: 20151029, end: 201603
  22. EXFORGE [Suspect]
     Active Substance: AMLODIPINE BESYLATE\VALSARTAN
     Indication: HYPERTENSION
     Dosage: 5/320MG
     Route: 048
     Dates: start: 2008
  23. ALPRAZOLAM. [Concomitant]
     Active Substance: ALPRAZOLAM
     Indication: ANXIETY
     Dosage: 1 MILLIGRAM DAILY;
     Route: 048
     Dates: start: 201001, end: 202001

REACTIONS (3)
  - Colon cancer stage IV [Fatal]
  - Gastric cancer stage IV [Fatal]
  - Hepatic cancer stage IV [Fatal]
